FAERS Safety Report 8401292-4 (Version None)
Quarter: 2012Q2

REPORT INFORMATION
  Report Type: 
  Country: None (occurrence: None)
  Receive Date: 20120530
  Receipt Date: 20120530
  Transmission Date: 20120825
  Serious: Yes (Life-Threatening, Hospitalization)
  Sender: FDA-Public Use
  Company Number: None

PATIENT
  Age: 41 Year
  Sex: Female
  Weight: 70.3075 kg

DRUGS (2)
  1. ZARAH [Suspect]
     Indication: CONTRACEPTION
     Dosage: 1 PILL DAY BY MOUTH
     Route: 048
     Dates: start: 20080101, end: 20120116
  2. ZARAH [Suspect]
     Indication: PREMENSTRUAL SYNDROME
     Dosage: 1 PILL DAY BY MOUTH
     Route: 048
     Dates: start: 20080101, end: 20120116

REACTIONS (1)
  - INTRACRANIAL VENOUS SINUS THROMBOSIS [None]
